FAERS Safety Report 21665978 (Version 2)
Quarter: 2022Q4

REPORT INFORMATION
  Report Type: Spontaneous
  Country: PT (occurrence: PT)
  Receive Date: 20221201
  Receipt Date: 20221223
  Transmission Date: 20230113
  Serious: Yes (Other)
  Sender: FDA-Public Use
  Company Number: None

PATIENT
  Age: 53 Year
  Sex: Male

DRUGS (1)
  1. SORAFENIB [Suspect]
     Active Substance: SORAFENIB
     Indication: Hepatocellular carcinoma
     Dosage: 400MG 2XDAY, DURATION : 27 DAYS, UNIT DOSE : 400 MG, FREQUENCY TIME : 2 DAYS, STRENGTH : 200 MG
     Dates: start: 20220914, end: 20221011

REACTIONS (1)
  - Myocardial necrosis marker increased [Unknown]

NARRATIVE: CASE EVENT DATE: 20221009
